FAERS Safety Report 6254573-7 (Version None)
Quarter: 2009Q3

REPORT INFORMATION
  Report Type: 
  Country: None (occurrence: None)
  Receive Date: 20090702
  Receipt Date: 20090622
  Transmission Date: 20100115
  Serious: Yes (Hospitalization)
  Sender: FDA-Public Use
  Company Number: A0781103A

PATIENT
  Age: 64 Year
  Sex: Female

DRUGS (8)
  1. AVANDIA [Suspect]
     Indication: DIABETES MELLITUS
     Dosage: 4MG TWICE PER DAY
     Route: 065
     Dates: start: 20050401, end: 20050501
  2. AVANDAMET [Suspect]
     Indication: DIABETES MELLITUS
     Dosage: 100MG TWICE PER DAY
     Route: 065
     Dates: start: 20031009, end: 20050401
  3. AVANDARYL [Suspect]
     Indication: DIABETES MELLITUS
     Route: 065
  4. ACTOS [Suspect]
  5. LISINOPRIL [Concomitant]
     Dosage: 10MG PER DAY
  6. GLUCOTROL [Concomitant]
     Dosage: 10MG TWICE PER DAY
  7. GLUCOPHAGE [Concomitant]
  8. LIPITOR [Concomitant]

REACTIONS (4)
  - CARDIAC FAILURE CONGESTIVE [None]
  - CHEST PAIN [None]
  - TRANSIENT ISCHAEMIC ATTACK [None]
  - WEIGHT INCREASED [None]
